FAERS Safety Report 24108604 (Version 1)
Quarter: 2024Q3

REPORT INFORMATION
  Report Type: Spontaneous
  Country: FR (occurrence: FR)
  Receive Date: 20240718
  Receipt Date: 20240718
  Transmission Date: 20241017
  Serious: Yes (Other)
  Sender: ROCHE
  Company Number: None

PATIENT
  Age: 56 Year
  Sex: Male
  Weight: 78 kg

DRUGS (6)
  1. CELLCEPT [Suspect]
     Active Substance: MYCOPHENOLATE MOFETIL
     Indication: Prophylaxis against transplant rejection
     Dosage: 1000 MG  2 FOIS PAR_JOUR
     Route: 048
     Dates: start: 20240201, end: 20240213
  2. VALGANCICLOVIR HYDROCHLORIDE [Suspect]
     Active Substance: VALGANCICLOVIR HYDROCHLORIDE
     Indication: Antiviral prophylaxis
     Dosage: 450 MG/ J
     Route: 048
     Dates: start: 20240202, end: 20240213
  3. PROGRAF [Suspect]
     Active Substance: TACROLIMUS
     Indication: Prophylaxis against transplant rejection
     Dosage: 1 MG/J DU 01/02 AU 05/02?PUIS 1,5 MG/J DU 05/02 AU 13/02
     Route: 048
     Dates: start: 20240201, end: 20240213
  4. CASPOFUNGIN ACETATE [Suspect]
     Active Substance: CASPOFUNGIN ACETATE
     Indication: Antifungal prophylaxis
     Dosage: 70 MG/ J
     Route: 042
     Dates: start: 20240201, end: 20240213
  5. NOXAFIL [Suspect]
     Active Substance: POSACONAZOLE
     Indication: Antifungal prophylaxis
     Dosage: 300 MG/ J
     Route: 042
     Dates: start: 20240209, end: 20240213
  6. LANSOPRAZOLE [Suspect]
     Active Substance: LANSOPRAZOLE
     Indication: Gastroduodenal ulcer
     Dosage: 60 MG/ J
     Route: 048
     Dates: start: 20240126, end: 20240213

REACTIONS (1)
  - Agranulocytosis [Recovered/Resolved]

NARRATIVE: CASE EVENT DATE: 20240211
